FAERS Safety Report 6035291-7 (Version None)
Quarter: 2009Q1

REPORT INFORMATION
  Report Type: 
  Country: None (occurrence: None)
  Receive Date: 20090109
  Receipt Date: 20081209
  Transmission Date: 20090719
  Serious: Yes (Other)
  Sender: FDA-Public Use
  Company Number: 1-17061941

PATIENT
  Age: 45 Year
  Sex: Female

DRUGS (9)
  1. SOLODYN [Suspect]
     Indication: ERYTHEMA
     Dosage: 90 MG DAILY ORAL
     Route: 048
     Dates: start: 20081013, end: 20081204
  2. SOLODYN [Suspect]
     Indication: SKIN DISORDER
     Dosage: 90 MG DAILY ORAL
     Route: 048
     Dates: start: 20081013, end: 20081204
  3. SOLODYN [Suspect]
     Indication: WOUND SECRETION
     Dosage: 90 MG DAILY ORAL
     Route: 048
     Dates: start: 20081013, end: 20081204
  4. PREDNISONE TAB [Concomitant]
  5. ZYRTEC [Concomitant]
  6. PROTONIX [Concomitant]
  7. TOPROL-XL [Concomitant]
  8. VITAMIN D [Concomitant]
  9. CALCIUM [Concomitant]

REACTIONS (6)
  - INFLUENZA [None]
  - MYELODYSPLASTIC SYNDROME [None]
  - NAUSEA [None]
  - VOMITING [None]
  - WEIGHT DECREASED [None]
  - WHITE BLOOD CELL COUNT DECREASED [None]
